FAERS Safety Report 10935371 (Version 2)
Quarter: 2015Q1

REPORT INFORMATION
  Report Type: Spontaneous
  Country: MY (occurrence: MY)
  Receive Date: 20150320
  Receipt Date: 20150320
  Transmission Date: 20150721
  Serious: Yes (Life-Threatening, Other)
  Sender: FDA-Public Use
  Company Number: MY-WATSON-2015-05140

PATIENT
  Age: 66 Year
  Sex: Female

DRUGS (3)
  1. MORPHINE (UNKNOWN) [Suspect]
     Active Substance: MORPHINE
     Indication: POSTOPERATIVE ANALGESIA
     Dosage: 6-8 ML/HR
     Route: 008
  2. FENTANYL (UNKNOWN) [Suspect]
     Active Substance: FENTANYL
     Indication: POSTOPERATIVE ANALGESIA
     Dosage: 6-8 ML/HR
     Route: 008
  3. LEVOBUPIVACAINE [Suspect]
     Active Substance: LEVOBUPIVACAINE
     Indication: POSTOPERATIVE ANALGESIA
     Dosage: UNK

REACTIONS (3)
  - Respiratory depression [Recovered/Resolved]
  - Overdose [Recovered/Resolved]
  - Drug dispensing error [Recovered/Resolved]
